FAERS Safety Report 9760715 (Version 1)
Quarter: 2013Q4

REPORT INFORMATION
  Report Type: Spontaneous
  Country: US (occurrence: US)
  Receive Date: 20131216
  Receipt Date: 20131216
  Transmission Date: 20140711
  Serious: No
  Sender: FDA-Public Use
  Company Number: US-BIOGENIDEC-2013BI101416

PATIENT
  Age: 52 Year
  Sex: Female

DRUGS (8)
  1. TECFIDERA [Suspect]
     Indication: MULTIPLE SCLEROSIS
     Route: 048
     Dates: start: 20131001, end: 20131006
  2. TECFIDERA [Suspect]
     Indication: MULTIPLE SCLEROSIS
     Route: 048
     Dates: start: 20131005, end: 20131012
  3. TECFIDERA [Suspect]
     Indication: MULTIPLE SCLEROSIS
  4. NEURONTIN [Concomitant]
  5. METFORMIN [Concomitant]
  6. NEXIUM [Concomitant]
  7. AVONEX [Concomitant]
     Indication: MULTIPLE SCLEROSIS
     Route: 030
     Dates: start: 20120116
  8. AVONEX [Concomitant]
     Indication: MULTIPLE SCLEROSIS
     Route: 030

REACTIONS (16)
  - Incorrect dose administered [Unknown]
  - Insomnia [Recovered/Resolved]
  - Dyspnoea [Unknown]
  - Sensation of foreign body [Unknown]
  - Painful respiration [Unknown]
  - Fatigue [Unknown]
  - Poor quality sleep [Unknown]
  - Chest discomfort [Unknown]
  - Chest pain [Unknown]
  - Sleep apnoea syndrome [Unknown]
  - Hot flush [Unknown]
  - Skin burning sensation [Unknown]
  - Nausea [Unknown]
  - Rash [Not Recovered/Not Resolved]
  - Abdominal pain upper [Recovered/Resolved]
  - Flushing [Recovered/Resolved]
